FAERS Safety Report 22640554 (Version 3)
Quarter: 2023Q4

REPORT INFORMATION
  Report Type: Spontaneous
  Country: FR (occurrence: FR)
  Receive Date: 20230626
  Receipt Date: 20231017
  Transmission Date: 20240110
  Serious: Yes (Disabling, Other)
  Sender: FDA-Public Use
  Company Number: FR-AMGEN-FRASP2023107242

PATIENT
  Age: 78 Year
  Sex: Female
  Weight: 44 kg

DRUGS (9)
  1. KYPROLIS [Suspect]
     Active Substance: CARFILZOMIB
     Indication: Plasma cell myeloma
     Dosage: 60 MILLIGRAM, QWK, 30 MIN INFUSION
     Route: 042
     Dates: start: 20220222
  2. KYPROLIS [Suspect]
     Active Substance: CARFILZOMIB
     Dosage: 60 MILLIGRAM, QWK, 30 MIN INFUSION
     Route: 042
  3. KYPROLIS [Suspect]
     Active Substance: CARFILZOMIB
     Dosage: UNK, DAY 1, DAY 8, DAY 15
     Route: 042
     Dates: start: 20230601
  4. KYPROLIS [Suspect]
     Active Substance: CARFILZOMIB
     Dosage: 56 MILLIGRAM, QWK (WEEKLY)
     Route: 065
     Dates: end: 202308
  5. DARZALEX [Suspect]
     Active Substance: DARATUMUMAB
     Indication: Plasma cell myeloma
     Dosage: UNK
     Route: 065
     Dates: start: 202202
  6. DARZALEX [Suspect]
     Active Substance: DARATUMUMAB
     Dosage: UNK UNK, QMO, 1800
     Route: 065
     Dates: start: 20230201, end: 20230601
  7. DEXAMETHASONE [Suspect]
     Active Substance: DEXAMETHASONE
     Indication: Plasma cell myeloma
     Dosage: 20 MILLIGRAM
     Route: 065
     Dates: start: 202202, end: 20230505
  8. DEXAMETHASONE [Suspect]
     Active Substance: DEXAMETHASONE
     Dosage: 20 MILLIGRAM, DAY 1, DAY 8, DAY 15
     Route: 065
     Dates: start: 20230201, end: 20230601
  9. DEXAMETHASONE [Suspect]
     Active Substance: DEXAMETHASONE
     Dosage: 8 MILLIGRAM, DAY 1, DAY 8, DAY 15
     Route: 065
     Dates: start: 2023

REACTIONS (7)
  - Pulmonary arterial hypertension [Unknown]
  - Nausea [Recovered/Resolved]
  - Vomiting [Recovered/Resolved]
  - Arrhythmia [Not Recovered/Not Resolved]
  - Hyperkinetic heart syndrome [Unknown]
  - Hypertension [Unknown]
  - Tachycardia [Not Recovered/Not Resolved]

NARRATIVE: CASE EVENT DATE: 20220101
